FAERS Safety Report 11540482 (Version 1)
Quarter: 2015Q3

REPORT INFORMATION
  Report Type: Spontaneous
  Country: US (occurrence: US)
  Receive Date: 20150923
  Receipt Date: 20150923
  Transmission Date: 20151125
  Serious: No
  Sender: FDA-Public Use
  Company Number: US-BEH-2015047752

PATIENT
  Age: 57 Year
  Sex: Female
  Weight: 67 kg

DRUGS (28)
  1. DIPHENHYDRAMINE. [Concomitant]
     Active Substance: DIPHENHYDRAMINE
  2. EPIPEN [Concomitant]
     Active Substance: EPINEPHRINE
  3. LAMICTAL [Concomitant]
     Active Substance: LAMOTRIGINE
  4. WELLBUTRIN [Concomitant]
     Active Substance: BUPROPION HYDROCHLORIDE
  5. MELOXICAM. [Concomitant]
     Active Substance: MELOXICAM
  6. ATENOLOL. [Concomitant]
     Active Substance: ATENOLOL
  7. ZOFRAN [Concomitant]
     Active Substance: ONDANSETRON HYDROCHLORIDE
  8. LEVOTHYROXINE. [Concomitant]
     Active Substance: LEVOTHYROXINE
  9. LIDOCAINE/PRILOCAINE [Concomitant]
  10. TRAMADOL. [Concomitant]
     Active Substance: TRAMADOL
  11. NORMAL SALINE [Concomitant]
     Active Substance: SODIUM CHLORIDE
  12. TRAZODONE [Concomitant]
     Active Substance: TRAZODONE HYDROCHLORIDE
  13. ASACOL [Concomitant]
     Active Substance: MESALAMINE
  14. PRIVIGEN [Suspect]
     Active Substance: HUMAN IMMUNOGLOBULIN G
     Indication: IMMUNODEFICIENCY COMMON VARIABLE
     Route: 042
  15. IPRATROPIUM [Concomitant]
     Active Substance: IPRATROPIUM
  16. LOMOTIL [Concomitant]
     Active Substance: ATROPINE SULFATE\DIPHENOXYLATE HYDROCHLORIDE
  17. NEXIUM [Concomitant]
     Active Substance: ESOMEPRAZOLE MAGNESIUM
  18. LEXAPRO [Concomitant]
     Active Substance: ESCITALOPRAM OXALATE
  19. VICODIN [Concomitant]
     Active Substance: ACETAMINOPHEN\HYDROCODONE BITARTRATE
  20. MECLIZINE [Concomitant]
     Active Substance: MECLIZINE\MECLIZINE HYDROCHLORIDE
  21. ZYRTEC [Concomitant]
     Active Substance: CETIRIZINE HYDROCHLORIDE
  22. ACETAMINOPHEN. [Concomitant]
     Active Substance: ACETAMINOPHEN
  23. SODIUM CHLORIDE. [Concomitant]
     Active Substance: SODIUM CHLORIDE
  24. PREDNISONE. [Concomitant]
     Active Substance: PREDNISONE
  25. ALPRAZOLAM. [Concomitant]
     Active Substance: ALPRAZOLAM
  26. LAMICTAL [Concomitant]
     Active Substance: LAMOTRIGINE
  27. NEXIUM [Concomitant]
     Active Substance: ESOMEPRAZOLE MAGNESIUM
  28. CHLORDIAZEPOXIDE-CLINDINIUM [Concomitant]

REACTIONS (2)
  - Urticaria [Not Recovered/Not Resolved]
  - Chills [Not Recovered/Not Resolved]

NARRATIVE: CASE EVENT DATE: 20150101
